FAERS Safety Report 4689621-9 (Version None)
Quarter: 2005Q2

REPORT INFORMATION
  Report Type: 
  Country: None (occurrence: None)
  Receive Date: 20050609
  Receipt Date: 20041208
  Transmission Date: 20051028
  Serious: Yes (Disabling)
  Sender: FDA-Public Use
  Company Number: 430092K04USA

PATIENT
  Age: 49 Year
  Sex: Female
  Weight: 57.6068 kg

DRUGS (1)
  1. NOVANTRONE [Suspect]
     Indication: MULTIPLE SCLEROSIS
     Dosage: ONCE, INTRAVENOUS
     Route: 042
     Dates: start: 20020417

REACTIONS (2)
  - DISEASE PROGRESSION [None]
  - NEUROTOXICITY [None]
